FAERS Safety Report 8826624 (Version 1)
Quarter: 2012Q4

REPORT INFORMATION
  Report Type: 
  Country: US (occurrence: US)
  Receive Date: 20121005
  Receipt Date: 20121005
  Transmission Date: 20130627
  Serious: Yes (Hospitalization)
  Sender: FDA-Public Use
  Company Number: PHHY2012US085399

PATIENT
  Age: 50 Year
  Sex: Female

DRUGS (6)
  1. HYDROCHLOROTHIAZIDE [Suspect]
     Dosage: 25 mg, per day
  2. LICORICE [Suspect]
  3. SERTRALINE [Concomitant]
  4. QUETIAPINE [Concomitant]
  5. CALCIUM [Concomitant]
  6. VITAMIN D [Concomitant]

REACTIONS (9)
  - Rhabdomyolysis [Recovered/Resolved]
  - Chromaturia [Unknown]
  - Myalgia [Unknown]
  - Gait disturbance [Unknown]
  - Hypocalcaemia [Unknown]
  - Hypophosphataemia [Unknown]
  - Hypokalaemia [Unknown]
  - Hyperparathyroidism [Recovering/Resolving]
  - Blood pressure increased [Recovering/Resolving]
